FAERS Safety Report 5978079-5 (Version None)
Quarter: 2008Q4

REPORT INFORMATION
  Report Type: 
  Country: None (occurrence: None)
  Receive Date: 20081126
  Receipt Date: 20081113
  Transmission Date: 20090506
  Serious: Yes (Life-Threatening, Hospitalization)
  Sender: FDA-Public Use
  Company Number: 2008S1020493

PATIENT
  Age: 86 Year
  Sex: Female

DRUGS (18)
  1. ALENDRONIC ACID (ALENDRONIC ACID) (70 MG) [Suspect]
     Indication: OSTEOPOROSIS PROPHYLAXIS
     Dosage: 70 MG; WEEKLY; ORAL
     Route: 048
     Dates: start: 20081019, end: 20081028
  2. CLOPIDOGREL [Suspect]
     Indication: ACUTE MYOCARDIAL INFARCTION
     Dosage: 75 MG; DAILY; ORAL
     Route: 048
     Dates: start: 20081009, end: 20081029
  3. DALTEPARIN SODIUM [Suspect]
     Indication: ACUTE MYOCARDIAL INFARCTION
     Dosage: 7500 IU; TWICE A DAY; SUBCUTANEOUS
     Route: 058
     Dates: start: 20081009, end: 20081011
  4. ADCAL-D3 [Concomitant]
  5. ASPIRIN [Concomitant]
  6. BISOPROLOL FUMARATE [Concomitant]
  7. ACETAMINOPHEN W/ CODEINE [Concomitant]
  8. DIGOXIN [Concomitant]
  9. FUROSEMIDE [Concomitant]
  10. FUSIDIC ACID [Concomitant]
  11. HYDROCORTISONE SODIUM SUCCINATE [Concomitant]
  12. LACTULOSE [Concomitant]
  13. METOCLOPRAMIDE [Concomitant]
  14. ACETAMINOPHEN [Concomitant]
  15. PREDNISOLONE [Concomitant]
  16. RANITIDINE [Concomitant]
  17. SIMVASTATIN [Concomitant]
  18. SPIRONOLACTONE [Concomitant]

REACTIONS (2)
  - GASTROINTESTINAL HAEMORRHAGE [None]
  - HAEMOGLOBIN DECREASED [None]
